FAERS Safety Report 22590840 (Version 3)
Quarter: 2023Q4

REPORT INFORMATION
  Report Type: Spontaneous
  Country: JP (occurrence: JP)
  Receive Date: 20230612
  Receipt Date: 20231215
  Transmission Date: 20240110
  Serious: Yes (Death, Other)
  Sender: FDA-Public Use
  Company Number: JP-MSD-M2023-14181

PATIENT
  Age: 7 Decade
  Sex: Male

DRUGS (4)
  1. KEYTRUDA [Suspect]
     Active Substance: PEMBROLIZUMAB
     Indication: Oesophageal carcinoma
     Dosage: 200 MILLIGRAM, Q3W
     Route: 041
     Dates: start: 20230403, end: 2023
  2. CISPLATIN [Suspect]
     Active Substance: CISPLATIN
     Indication: Oesophageal carcinoma
     Dosage: UNK
     Route: 051
     Dates: start: 20230403, end: 2023
  3. CISPLATIN [Suspect]
     Active Substance: CISPLATIN
     Dosage: DOSE DOWN TO 50%
     Route: 051
     Dates: start: 2023, end: 2023
  4. FLUOROURACIL [Concomitant]
     Active Substance: FLUOROURACIL
     Indication: Oesophageal carcinoma
     Dosage: UNK
     Route: 051
     Dates: start: 20230403, end: 2023

REACTIONS (4)
  - Death [Fatal]
  - Renal impairment [Unknown]
  - Malignant neoplasm progression [Unknown]
  - Malaise [Unknown]

NARRATIVE: CASE EVENT DATE: 20230101
